FAERS Safety Report 11434039 (Version 1)
Quarter: 2015Q3

REPORT INFORMATION
  Report Type: Spontaneous
  Country: FR (occurrence: FR)
  Receive Date: 20150831
  Receipt Date: 20150831
  Transmission Date: 20151125
  Serious: Yes (Hospitalization, Other)
  Sender: FDA-Public Use
  Company Number: FR-ELI_LILLY_AND_COMPANY-FR201508005673

PATIENT
  Age: 61 Year
  Sex: Male

DRUGS (7)
  1. CARBOPLATINE [Suspect]
     Active Substance: CARBOPLATIN
     Indication: METASTATIC BRONCHIAL CARCINOMA
     Dosage: 380 MG, CYCLICAL
     Route: 042
     Dates: start: 201503, end: 20150414
  2. PLAVIX [Concomitant]
     Active Substance: CLOPIDOGREL BISULFATE
     Dosage: UNK, UNKNOWN
     Route: 065
  3. LERCANIDIPINE [Concomitant]
     Active Substance: LERCANIDIPINE
     Dosage: UNK, UNKNOWN
     Route: 065
  4. CRESTOR [Concomitant]
     Active Substance: ROSUVASTATIN CALCIUM
     Dosage: UNK, UNKNOWN
     Route: 065
  5. OMACOR [Concomitant]
     Active Substance: OMEGA-3-ACID ETHYL ESTERS
     Dosage: UNK, UNKNOWN
     Route: 065
  6. ESOMEPRAZOLE [Concomitant]
     Active Substance: ESOMEPRAZOLE
     Dosage: UNK, UNKNOWN
     Route: 065
  7. ALIMTA [Suspect]
     Active Substance: PEMETREXED DISODIUM
     Indication: METASTATIC BRONCHIAL CARCINOMA
     Dosage: 845 MG, CYCLICAL
     Route: 042
     Dates: start: 201503, end: 20150414

REACTIONS (12)
  - Micturition disorder [Recovered/Resolved]
  - Pallor [Recovered/Resolved]
  - Pancytopenia [Recovered/Resolved]
  - Malaise [Recovered/Resolved]
  - Hypoxia [Unknown]
  - General physical health deterioration [Recovering/Resolving]
  - Blood pressure decreased [Recovered/Resolved]
  - Sepsis [Unknown]
  - Hypertonia [Recovered/Resolved]
  - Bronchial disorder [Unknown]
  - Movement disorder [Unknown]
  - Feeling hot [Unknown]

NARRATIVE: CASE EVENT DATE: 20150414
